FAERS Safety Report 25088055 (Version 1)
Quarter: 2025Q1

REPORT INFORMATION
  Report Type: Spontaneous
  Country: US (occurrence: None)
  Receive Date: 20250318
  Receipt Date: 20250318
  Transmission Date: 20250409
  Serious: Yes (Life-Threatening, Hospitalization)
  Sender: NORMON
  Company Number: US-MLMSERVICE-20250306-PI438004-00050-1

PATIENT
  Age: 67 Year
  Sex: Female

DRUGS (8)
  1. METOPROLOL [Suspect]
     Active Substance: METOPROLOL
  2. AMLODIPINE [Suspect]
     Active Substance: AMLODIPINE BESYLATE
  3. MIRTAZAPINE [Suspect]
     Active Substance: MIRTAZAPINE
  4. PANTOPRAZOLE [Suspect]
     Active Substance: PANTOPRAZOLE
  5. QUETIAPINE [Suspect]
     Active Substance: QUETIAPINE
  6. LEVETIRACETAM [Suspect]
     Active Substance: LEVETIRACETAM
  7. LEVOTHYROXINE [Suspect]
     Active Substance: LEVOTHYROXINE
  8. MELATONIN [Suspect]
     Active Substance: MELATONIN

REACTIONS (10)
  - Intentional overdose [Recovered/Resolved]
  - Hypotension [Recovered/Resolved]
  - Mental status changes [Recovered/Resolved]
  - Respiratory failure [Recovered/Resolved]
  - Hypercapnia [Recovered/Resolved]
  - Blood creatinine increased [Recovered/Resolved]
  - Metabolic acidosis [Recovered/Resolved]
  - Overdose [Recovered/Resolved]
  - Vasoplegia syndrome [Recovered/Resolved]
  - Suicide attempt [Recovered/Resolved]
